FAERS Safety Report 24544189 (Version 1)
Quarter: 2024Q4

REPORT INFORMATION
  Report Type: Report from Study
  Country: US (occurrence: US)
  Receive Date: 20241024
  Receipt Date: 20241024
  Transmission Date: 20250115
  Serious: Yes (Other)
  Sender: ROCHE
  Company Number: US-ROCHE-10000003576

PATIENT
  Age: 66 Year
  Sex: Male

DRUGS (19)
  1. RITUXAN [Suspect]
     Active Substance: RITUXIMAB
     Indication: Bone marrow transplant
     Route: 065
  2. ATOVAQUONE [Concomitant]
     Active Substance: ATOVAQUONE
  3. HYDROCORTISONE [Concomitant]
     Active Substance: HYDROCORTISONE
  4. HYDROXYZINE [Concomitant]
     Active Substance: HYDROXYZINE HYDROCHLORIDE
  5. LOPERAMIDE [Concomitant]
     Active Substance: LOPERAMIDE
  6. ONDANSETRON [Concomitant]
     Active Substance: ONDANSETRON
  7. OXYCODONE [Concomitant]
     Active Substance: OXYCODONE
  8. PANTOPRAZOLE [Concomitant]
     Active Substance: PANTOPRAZOLE
  9. POSACONAZOLE [Concomitant]
     Active Substance: POSACONAZOLE
  10. PREDNISONE [Concomitant]
     Active Substance: PREDNISONE
  11. PROCHLORPERAZINE [Concomitant]
     Active Substance: PROCHLORPERAZINE
  12. RITUXAN [Concomitant]
     Active Substance: RITUXIMAB
  13. ROSUVASTATIN [Concomitant]
     Active Substance: ROSUVASTATIN
  14. JAKAFI [Concomitant]
     Active Substance: RUXOLITINIB
  15. SERTRALINE [Concomitant]
     Active Substance: SERTRALINE HYDROCHLORIDE
  16. PROGRAF [Concomitant]
     Active Substance: TACROLIMUS
  17. TRAMADOL [Concomitant]
     Active Substance: TRAMADOL
  18. TRIAMCINOLONE [Concomitant]
     Active Substance: TRIAMCINOLONE
  19. URSODIOL [Concomitant]
     Active Substance: URSODIOL

REACTIONS (13)
  - Essential hypertension [Unknown]
  - Heart disease congenital [Unknown]
  - Ischaemic stroke [Unknown]
  - Nausea [Unknown]
  - Vomiting [Unknown]
  - Enterocolitis [Unknown]
  - Diarrhoea [Unknown]
  - Hyperactive pharyngeal reflex [Unknown]
  - Osteoarthritis [Unknown]
  - Acute graft versus host disease [Unknown]
  - Febrile neutropenia [Unknown]
  - Acute myeloid leukaemia [Unknown]
  - Off label use [Unknown]
